FAERS Safety Report 25830834 (Version 1)
Quarter: 2025Q3

REPORT INFORMATION
  Report Type: Report from Study
  Country: CA (occurrence: CA)
  Receive Date: 20250922
  Receipt Date: 20250922
  Transmission Date: 20251021
  Serious: Yes (Other)
  Sender: TEVA
  Company Number: CA-TEVA-VS-3373261

PATIENT
  Age: 80 Year
  Sex: Female
  Weight: 64 kg

DRUGS (29)
  1. ALENDRONATE SODIUM [Suspect]
     Active Substance: ALENDRONATE SODIUM
     Indication: Bone disorder
     Route: 048
  2. METHOTREXATE [Concomitant]
     Active Substance: METHOTREXATE
     Indication: Rheumatoid arthritis
     Route: 048
  3. TRACLEER [Suspect]
     Active Substance: BOSENTAN
     Indication: Scleroderma
     Route: 048
  4. TRACLEER [Suspect]
     Active Substance: BOSENTAN
     Indication: Scleroderma
     Route: 048
  5. FLUOXETINE [Concomitant]
     Active Substance: FLUOXETINE HYDROCHLORIDE
     Indication: Depression
     Route: 048
  6. FENTANYL [Concomitant]
     Active Substance: FENTANYL
     Indication: Colonoscopy
  7. PANTOPRAZOLE [Concomitant]
     Active Substance: PANTOPRAZOLE
     Indication: Gastrooesophageal reflux disease
     Route: 048
  8. PREGABALIN [Concomitant]
     Active Substance: PREGABALIN
     Indication: Neck pain
     Route: 048
  9. MIDAZOLAM [Concomitant]
     Active Substance: MIDAZOLAM
     Indication: Colonoscopy
  10. UPTRAVI [Suspect]
     Active Substance: SELEXIPAG
     Indication: Scleroderma
     Route: 048
  11. UPTRAVI [Suspect]
     Active Substance: SELEXIPAG
     Indication: Scleroderma
     Route: 048
  12. UPTRAVI [Suspect]
     Active Substance: SELEXIPAG
     Indication: Scleroderma
     Route: 048
  13. UPTRAVI [Suspect]
     Active Substance: SELEXIPAG
     Indication: Scleroderma
     Route: 048
  14. UPTRAVI [Suspect]
     Active Substance: SELEXIPAG
     Indication: Scleroderma
     Route: 048
  15. UPTRAVI [Suspect]
     Active Substance: SELEXIPAG
     Indication: Scleroderma
     Route: 048
  16. UPTRAVI [Suspect]
     Active Substance: SELEXIPAG
     Indication: Scleroderma
     Route: 048
  17. UPTRAVI [Suspect]
     Active Substance: SELEXIPAG
     Indication: Scleroderma
     Route: 048
  18. UPTRAVI [Suspect]
     Active Substance: SELEXIPAG
     Indication: Scleroderma
     Route: 048
  19. UPTRAVI [Suspect]
     Active Substance: SELEXIPAG
     Indication: Scleroderma
     Route: 048
  20. UPTRAVI [Suspect]
     Active Substance: SELEXIPAG
     Indication: Scleroderma
     Route: 048
  21. UPTRAVI [Suspect]
     Active Substance: SELEXIPAG
     Indication: Scleroderma
     Route: 048
  22. FELODIPINE [Concomitant]
     Active Substance: FELODIPINE
     Indication: Raynaud^s phenomenon
     Route: 048
  23. LORAZEPAM [Concomitant]
     Active Substance: LORAZEPAM
     Indication: Anxiety
     Route: 048
  24. FOLIC ACID [Concomitant]
     Active Substance: FOLIC ACID
     Indication: Prophylaxis
     Route: 048
  25. FUROSEMIDE [Concomitant]
     Active Substance: FUROSEMIDE
     Indication: Oedema peripheral
     Route: 048
  26. AMBRISENTAN [Concomitant]
     Active Substance: AMBRISENTAN
     Indication: Product used for unknown indication
  27. ASPIRIN [Concomitant]
     Active Substance: ASPIRIN
     Indication: Product used for unknown indication
     Route: 048
  28. ADCIRCA [Concomitant]
     Active Substance: TADALAFIL
     Indication: Pulmonary arterial hypertension
     Route: 048
  29. ADCIRCA [Concomitant]
     Active Substance: TADALAFIL
     Indication: Pulmonary arterial hypertension
     Route: 048

REACTIONS (7)
  - Melaena [Not Recovered/Not Resolved]
  - Haemorrhage [Not Recovered/Not Resolved]
  - Headache [Not Recovered/Not Resolved]
  - Pain in jaw [Not Recovered/Not Resolved]
  - Anaemia [Not Recovered/Not Resolved]
  - Large intestine polyp [Not Recovered/Not Resolved]
  - Dizziness [Not Recovered/Not Resolved]
